FAERS Safety Report 15195117 (Version 1)
Quarter: 2018Q3

REPORT INFORMATION
  Report Type: Spontaneous
  Country: US (occurrence: US)
  Receive Date: 20180725
  Receipt Date: 20180725
  Transmission Date: 20181010
  Serious: No
  Sender: FDA-Public Use
  Company Number: US-ASTRAZENECA-2018SE92017

PATIENT
  Sex: Male

DRUGS (2)
  1. PULMICORT RESPULES [Suspect]
     Active Substance: BUDESONIDE
     Route: 055
  2. MEPOLIZUMAB [Concomitant]
     Active Substance: MEPOLIZUMAB

REACTIONS (1)
  - Eosinophil count increased [Unknown]
